FAERS Safety Report 8895595 (Version 2)
Quarter: 2012Q4

REPORT INFORMATION
  Report Type: 
  Country: GR (occurrence: GR)
  Receive Date: 20121107
  Receipt Date: 20121121
  Transmission Date: 20130627
  Serious: Yes (Hospitalization)
  Sender: FDA-Public Use
  Company Number: GR-SPECIAR-2012-18493

PATIENT
  Age: 55 Year
  Sex: Female

DRUGS (1)
  1. TOPIRAMATE [Suspect]
     Indication: PRODUCT USED FOR UNKNOWN INDICATION
     Dosage: UNK
     Route: 065

REACTIONS (4)
  - Rash [Recovered/Resolved]
  - Laryngeal oedema [Recovered/Resolved]
  - Anaphylactic shock [Recovered/Resolved]
  - Rash generalised [Recovered/Resolved]
